FAERS Safety Report 7519090-2 (Version None)
Quarter: 2011Q2

REPORT INFORMATION
  Report Type: 
  Country: None (occurrence: None)
  Receive Date: 20110512
  Receipt Date: 20110223
  Transmission Date: 20111010
  Serious: Yes (Other)
  Sender: FDA-Public Use
  Company Number: 1000018513

PATIENT
  Age: 66 Year
  Sex: Female
  Weight: 57.15 kg

DRUGS (14)
  1. LISINOPRIL [Concomitant]
  2. ACTONEL (RISEDRONATE SODIUM) (RISEDRONATE SODIUM) [Concomitant]
  3. DILTIAZEM [Concomitant]
  4. CARVEDILOL [Concomitant]
  5. GLUCOSAMINE/CHONDROITIN (GLUCOSAMINE/CHONDROITIN) (GLUCOSAMINE/CHONDRO [Concomitant]
  6. TEMAZEPAM [Concomitant]
  7. LIDODERM (LIDOCAINE) (LIDOCAINE) [Concomitant]
  8. SAVELLA [Suspect]
     Indication: FIBROMYALGIA
     Dosage: 50 MG (25 MG, 2 IN 1 D), ORAL; 25 MG (12.5 MG, 2 IN 1 D), ORAL
     Route: 048
     Dates: start: 20110113, end: 20110121
  9. SAVELLA [Suspect]
     Indication: FIBROMYALGIA
     Dosage: 50 MG (25 MG, 2 IN 1 D), ORAL; 25 MG (12.5 MG, 2 IN 1 D), ORAL
     Route: 048
     Dates: start: 20101230, end: 20110112
  10. LEVOTHYROID (LEVOTHYROXINE SODIUM) (LEVOTHYROXINE SODIUM) [Concomitant]
  11. CLONAZEPAM [Concomitant]
  12. TRAMADOL HCL [Concomitant]
  13. SAVELLA [Suspect]
     Indication: FIBROMYALGIA
     Dosage: 25 MG (12.5 MG, 2 IN 1 D), ORAL
     Route: 048
     Dates: start: 20101011, end: 20101229
  14. CYCLOBENZAPRINE [Concomitant]

REACTIONS (2)
  - SUICIDAL IDEATION [None]
  - INSOMNIA [None]
